APPROVED DRUG PRODUCT: ANTITUSSIVE
Active Ingredient: DIPHENHYDRAMINE HYDROCHLORIDE
Strength: 12.5MG/5ML
Dosage Form/Route: SYRUP;ORAL
Application: A071292 | Product #001
Applicant: L PERRIGO CO
Approved: Apr 10, 1987 | RLD: No | RS: No | Type: DISCN